FAERS Safety Report 25835716 (Version 6)
Quarter: 2025Q4

REPORT INFORMATION
  Report Type: Report from Study
  Country: US (occurrence: US)
  Receive Date: 20250923
  Receipt Date: 20251203
  Transmission Date: 20260117
  Serious: Yes (Other)
  Sender: INSMED
  Company Number: US-INSMED, INC.-2025-01706-US

PATIENT
  Sex: Male

DRUGS (3)
  1. ARIKAYCE [Suspect]
     Active Substance: AMIKACIN
     Indication: Mycobacterium avium complex infection
     Dosage: 590 MILLIGRAM, QD
     Route: 055
     Dates: start: 2025, end: 20250905
  2. ARIKAYCE [Suspect]
     Active Substance: AMIKACIN
     Dosage: 590 MILLIGRAM, QD
     Route: 055
     Dates: start: 202509
  3. ALBUTEROL [Suspect]
     Active Substance: ALBUTEROL
     Indication: Product used for unknown indication
     Dosage: UNK, UNK (TWO PUFFS EVERY SIX HOURS AS NEEDED)
     Route: 055

REACTIONS (34)
  - Oxygen saturation decreased [Unknown]
  - Erythropsia [Not Recovered/Not Resolved]
  - Dysstasia [Unknown]
  - Vision blurred [Not Recovered/Not Resolved]
  - Tremor [Unknown]
  - Sputum abnormal [Unknown]
  - Vision blurred [Recovered/Resolved]
  - Drug intolerance [Unknown]
  - Palpitations [Recovering/Resolving]
  - Sputum discoloured [Unknown]
  - Neck pain [Unknown]
  - Decreased appetite [Unknown]
  - Anxiety [Recovering/Resolving]
  - Abdominal discomfort [Unknown]
  - Sputum increased [Unknown]
  - General symptom [Unknown]
  - Adverse drug reaction [Unknown]
  - Cough [Not Recovered/Not Resolved]
  - Haemoptysis [Unknown]
  - Headache [Unknown]
  - Asthenia [Unknown]
  - Dyspnoea [Unknown]
  - Unevaluable event [Unknown]
  - Fatigue [Unknown]
  - Patient dissatisfaction with treatment [Unknown]
  - Product dose omission issue [Unknown]
  - Intentional dose omission [Unknown]
  - Device use issue [Unknown]
  - Accidental exposure to product [Unknown]
  - Wrong technique in device usage process [Unknown]
  - Device leakage [Unknown]
  - Accidental underdose [Unknown]
  - Drug dose omission by device [Unknown]
  - Incorrect product administration duration [Unknown]

NARRATIVE: CASE EVENT DATE: 20250101
